FAERS Safety Report 9034163 (Version 1)
Quarter: 2013Q1

REPORT INFORMATION
  Report Type: Spontaneous
  Country: US (occurrence: None)
  Receive Date: 20130114
  Receipt Date: 20130114
  Transmission Date: 20140127
  Serious: Yes (Other)
  Sender: FDA-Public Use
  Company Number: B0857286A

PATIENT
  Age: 10 Year
  Sex: Female

DRUGS (2)
  1. FLUTICASONE PROPIONATE [Suspect]
     Dosage: 2 SPRAY
     Route: 055
  2. ADVAIR [Suspect]
     Dosage: 2 PUFF(S)

REACTIONS (4)
  - Adrenal insufficiency [None]
  - Weight gain poor [None]
  - Fatigue [None]
  - Failure to thrive [None]
